FAERS Safety Report 6435195-1 (Version None)
Quarter: 2009Q4

REPORT INFORMATION
  Report Type: 
  Country: None (occurrence: None)
  Receive Date: 20091106
  Receipt Date: 20091023
  Transmission Date: 20100525
  Serious: Yes (Hospitalization)
  Sender: FDA-Public Use
  Company Number: BVT-000091

PATIENT
  Sex: Female

DRUGS (3)
  1. KINERET [Suspect]
     Indication: RHEUMATOID ARTHRITIS
     Dates: start: 20040901, end: 20050301
  2. HOMIRA (HUMIRA) (NOT SPECIFIED) [Suspect]
     Indication: RHEUMATOID ARTHRITIS
     Dosage: (40 MG 1X/2  WEEKS SUBCUTANEOUS)
     Route: 057
     Dates: start: 20060201, end: 20070201
  3. METHOTREXATE (METHOTREXATE) (WYETH LEDERLE) [Suspect]
     Dates: start: 20010701, end: 20050601

REACTIONS (1)
  - B-CELL LYMPHOMA [None]
